FAERS Safety Report 6678149-2 (Version None)
Quarter: 2010Q2

REPORT INFORMATION
  Report Type: 
  Country: None (occurrence: None)
  Receive Date: 20100409
  Receipt Date: 20100409
  Transmission Date: 20101027
  Serious: Yes (Other)
  Sender: FDA-Public Use
  Company Number: None

PATIENT
  Age: 17 Year
  Sex: Female

DRUGS (1)
  1. NEUTROGENA SKIN ID HYDRATOR (2% SYLICYLIC ACID) [Suspect]
     Indication: ACNE
     Dosage: TOPICALLY
     Route: 061
     Dates: start: 20091103

REACTIONS (3)
  - DYSPNOEA [None]
  - ERYTHEMA [None]
  - SWELLING FACE [None]
